FAERS Safety Report 10867953 (Version 1)
Quarter: 2015Q1

REPORT INFORMATION
  Report Type: Spontaneous
  Country: US (occurrence: US)
  Receive Date: 20150225
  Receipt Date: 20150225
  Transmission Date: 20150721
  Serious: No
  Sender: FDA-Public Use
  Company Number: US-VIVUS-2015V1000026

PATIENT
  Age: 56 Year
  Sex: Male
  Weight: 122.58 kg

DRUGS (4)
  1. STENDRA [Suspect]
     Active Substance: AVANAFIL
     Indication: ERECTILE DYSFUNCTION
     Dates: start: 20150114, end: 20150114
  2. HIGH BLOOD PRESSUE MEDICATION [Concomitant]
     Indication: HYPERTENSION
  3. STENDRA [Suspect]
     Active Substance: AVANAFIL
     Dates: start: 20150118
  4. ACID REFLUX MEDICATION [Concomitant]
     Active Substance: UNSPECIFIED INGREDIENT
     Indication: GASTROOESOPHAGEAL REFLUX DISEASE

REACTIONS (1)
  - Drug ineffective [Recovered/Resolved]

NARRATIVE: CASE EVENT DATE: 20150114
